FAERS Safety Report 7304480-3 (Version None)
Quarter: 2011Q1

REPORT INFORMATION
  Report Type: 
  Country: None (occurrence: None)
  Receive Date: 20110221
  Receipt Date: 20110211
  Transmission Date: 20110831
  Serious: Yes (Other)
  Sender: FDA-Public Use
  Company Number: US-MERCK-1102USA01696

PATIENT
  Sex: Male

DRUGS (1)
  1. FOSAMAX [Suspect]
     Indication: OSTEOPOROSIS
     Route: 048
     Dates: start: 19980101

REACTIONS (5)
  - FIBULA FRACTURE [None]
  - BONE DENSITY DECREASED [None]
  - FEMUR FRACTURE [None]
  - HIP FRACTURE [None]
  - TOOTH FRACTURE [None]
